FAERS Safety Report 23390392 (Version 1)
Quarter: 2024Q1

REPORT INFORMATION
  Report Type: Spontaneous
  Country: NL (occurrence: NL)
  Receive Date: 20240111
  Receipt Date: 20240111
  Transmission Date: 20240410
  Serious: Yes (Hospitalization)
  Sender: FDA-Public Use
  Company Number: NL-LRB-00906309

PATIENT
  Age: 68 Year
  Sex: Male
  Weight: 71 kg

DRUGS (1)
  1. SUNITINIB [Suspect]
     Active Substance: SUNITINIB
     Indication: Renal cell carcinoma recurrent
     Dosage: 1DD1 PIECE 4WKS ON 2 WKS OFF
     Route: 065
     Dates: start: 20230809, end: 20230823

REACTIONS (1)
  - Haemolysis [Recovering/Resolving]
